FAERS Safety Report 12510323 (Version 2)
Quarter: 2016Q3

REPORT INFORMATION
  Report Type: Spontaneous
  Country: US (occurrence: US)
  Receive Date: 20160629
  Receipt Date: 20160913
  Transmission Date: 20161109
  Serious: No
  Sender: FDA-Public Use
  Company Number: US-RB-079563-15

PATIENT
  Age: 36 Year
  Sex: Female

DRUGS (3)
  1. EXTENDED MORPHINE [Concomitant]
     Indication: PRODUCT USED FOR UNKNOWN INDICATION
     Dosage: DOSE UNK, UNITS UNK, FREQUENCY UNK
     Route: 065
  2. MUCINEX [Suspect]
     Active Substance: GUAIFENESIN
     Indication: PRODUCT USED FOR UNKNOWN INDICATION
     Dosage: 600MG. ,QD
     Route: 065
     Dates: start: 20150801
  3. HYDROCODONE [Concomitant]
     Active Substance: HYDROCODONE
     Indication: PRODUCT USED FOR UNKNOWN INDICATION
     Dosage: DOSE UNK, UNITS UNK, FREQUENCY UNK
     Route: 065

REACTIONS (3)
  - Oxygen saturation decreased [Not Recovered/Not Resolved]
  - Feeling abnormal [Not Recovered/Not Resolved]
  - Heart rate increased [Not Recovered/Not Resolved]

NARRATIVE: CASE EVENT DATE: 20150802
